FAERS Safety Report 11836273 (Version 1)
Quarter: 2015Q4

REPORT INFORMATION
  Report Type: Spontaneous
  Country: HR (occurrence: HR)
  Receive Date: 20151215
  Receipt Date: 20151215
  Transmission Date: 20160305
  Serious: Yes (Death, Life-Threatening)
  Sender: FDA-Public Use
  Company Number: HR-TEVA-616272ISR

PATIENT
  Age: 67 Year
  Sex: Female
  Weight: 50 kg

DRUGS (6)
  1. REGLAN TABLETE [Concomitant]
     Route: 048
  2. COMTAN [Interacting]
     Active Substance: ENTACAPONE
     Indication: PARKINSON^S DISEASE
     Route: 048
     Dates: start: 20141009
  3. ACIPAN [Concomitant]
     Active Substance: PANTOPRAZOLE SODIUM
     Route: 048
  4. NAKOM [Interacting]
     Active Substance: CARBIDOPA\LEVODOPA
     Indication: PARKINSON^S DISEASE
     Route: 048
     Dates: start: 20141009
  5. DOXORUBICIN NOS [Suspect]
     Active Substance: DOXORUBICIN
     Indication: BREAST CANCER
     Route: 065
  6. BRUFEN [Concomitant]
     Active Substance: IBUPROFEN
     Route: 048

REACTIONS (4)
  - Hallucination [Unknown]
  - Psychotic disorder [Unknown]
  - Dyskinesia [Unknown]
  - Drug interaction [Unknown]

NARRATIVE: CASE EVENT DATE: 20150901
